FAERS Safety Report 10652695 (Version 2)
Quarter: 2014Q4

REPORT INFORMATION
  Report Type: Report from Study
  Country: FR (occurrence: FR)
  Receive Date: 20141215
  Receipt Date: 20141215
  Transmission Date: 20150529
  Serious: Yes (Hospitalization)
  Sender: FDA-Public Use
  Company Number: FR-B.I. PHARMACEUTICALS,INC./RIDGEFIELD-2014-BI-55618II

PATIENT
  Age: 67 Year
  Sex: Male

DRUGS (9)
  1. NIVESTIM [Concomitant]
     Active Substance: FILGRASTIM
     Indication: PROPHYLAXIS
     Dosage: FORMULATION: SOLUTION INJECTABLE/ POUR PERFUSION; DOSE PER APPLICATION AND DAILY DOSE: 30MU/0.5ML
     Route: 042
     Dates: start: 20141107, end: 20141111
  2. CISPLATINUM [Concomitant]
     Active Substance: CISPLATIN
     Dosage: 122 MG
     Route: 042
     Dates: start: 20141115, end: 20141115
  3. BIBW 2992 [Suspect]
     Active Substance: AFATINIB
     Indication: SQUAMOUS CELL CARCINOMA OF HEAD AND NECK
     Dosage: 20 MG
     Route: 048
     Dates: start: 20141016, end: 20141021
  4. BIBW 2992 [Suspect]
     Active Substance: AFATINIB
     Dosage: 20 MG
     Route: 048
     Dates: start: 20141106, end: 20141112
  5. TAXOTERE [Concomitant]
     Active Substance: DOCETAXEL
     Dosage: 120 MG
     Route: 042
     Dates: start: 20141105, end: 20141105
  6. BIBW 2992 [Suspect]
     Active Substance: AFATINIB
     Dosage: 20 MG
     Route: 048
     Dates: start: 20141121, end: 20141121
  7. CISPLATINUM [Concomitant]
     Active Substance: CISPLATIN
     Indication: SQUAMOUS CELL CARCINOMA
     Dosage: 122 MG
     Route: 042
     Dates: start: 20141015, end: 20141015
  8. CISPLATINUM [Concomitant]
     Active Substance: CISPLATIN
     Dosage: 120 MG
     Route: 042
     Dates: start: 20141105, end: 20141105
  9. TAXOTERE [Concomitant]
     Active Substance: DOCETAXEL
     Indication: PROSTATE CANCER METASTATIC
     Dosage: 122 MG
     Route: 042
     Dates: start: 20141015, end: 20141015

REACTIONS (3)
  - Depression [Recovered/Resolved]
  - Device related infection [Not Recovered/Not Resolved]
  - General physical health deterioration [Recovered/Resolved]

NARRATIVE: CASE EVENT DATE: 20141021
